FAERS Safety Report 8675034 (Version 2)
Quarter: 2012Q4

REPORT INFORMATION
  Report Type: 
  Country: US (occurrence: US)
  Receive Date: 20120720
  Receipt Date: 20120829
  Transmission Date: 20130627
  Serious: Yes (Hospitalization)
  Sender: FDA-Public Use
  Company Number: US-ELI_LILLY_AND_COMPANY-US201109000373

PATIENT
  Age: 61 None
  Sex: Male
  Weight: 73.47 kg

DRUGS (13)
  1. FORTEO [Suspect]
     Indication: OSTEOPOROSIS
     Dosage: 20 ug, qd
     Route: 058
     Dates: start: 20110809
  2. FORTEO [Suspect]
     Dosage: 20 ug, qd
  3. HYDROCHLOROTHIAZIDE [Concomitant]
     Dosage: UNK
  4. VITAMIN D [Concomitant]
     Dosage: UNK
  5. CALCIUM [Concomitant]
     Dosage: UNK
  6. MAGNESIUM [Concomitant]
     Dosage: UNK
  7. SAW PALMETTO [Concomitant]
     Dosage: UNK
  8. FISH OIL [Concomitant]
     Dosage: UNK
  9. LIVER [Concomitant]
     Dosage: UNK
  10. MULTIVITAMIN [Concomitant]
     Dosage: UNK
  11. COQ-10 [Concomitant]
     Dosage: UNK
  12. B COMPLEX [Concomitant]
     Dosage: UNK
  13. TESTOSTERONE [Concomitant]
     Dosage: UNK

REACTIONS (2)
  - Removal of foreign body [Unknown]
  - Insomnia [Unknown]
